FAERS Safety Report 5297831-5 (Version None)
Quarter: 2007Q2

REPORT INFORMATION
  Report Type: 
  Country: None (occurrence: None)
  Receive Date: 20070416
  Receipt Date: 20070402
  Transmission Date: 20071010
  Serious: Yes (Other)
  Sender: FDA-Public Use
  Company Number: US-SOLVAY-00207000903

PATIENT
  Age: 20389 Day
  Sex: Male
  Weight: 91 kg

DRUGS (4)
  1. ACETAMINOPHEN [Concomitant]
     Indication: MYALGIA
     Dosage: DAILY DOSE:  PRN
     Route: 048
     Dates: start: 20000101
  2. TESTOSTERONE [Suspect]
     Indication: HYPOGONADISM
     Dosage: DAILY DOSE: 5 GRAM(S)
     Route: 062
     Dates: start: 20070310, end: 20070316
  3. IBUPROFEN [Concomitant]
     Indication: JOINT STIFFNESS
     Dosage: DAILY DOSE:  PRN
     Route: 048
     Dates: start: 20000101
  4. VITAMIN CAP [Concomitant]
     Indication: ROUTINE HEALTH MAINTENANCE
     Dosage: DAILY DOSE: 1 DOSAGE FORM
     Route: 048
     Dates: start: 20000101

REACTIONS (2)
  - DERMATITIS [None]
  - MUSCLE STRAIN [None]
